FAERS Safety Report 9371770 (Version 1)
Quarter: 2013Q2

REPORT INFORMATION
  Report Type: Spontaneous
  Country: US (occurrence: US)
  Receive Date: 20130627
  Receipt Date: 20130627
  Transmission Date: 20140414
  Serious: Yes (Hospitalization)
  Sender: FDA-Public Use
  Company Number: US-ELI_LILLY_AND_COMPANY-US201306006175

PATIENT
  Age: 18 Year
  Sex: Female
  Weight: 38.09 kg

DRUGS (1)
  1. HUMALOG 25% LISPRO, 75% NPL [Suspect]
     Route: 058

REACTIONS (2)
  - Blood glucose increased [Recovering/Resolving]
  - Chest pain [Unknown]
